FAERS Safety Report 14466697 (Version 1)
Quarter: 2018Q1

REPORT INFORMATION
  Report Type: Other
  Country: US (occurrence: US)
  Receive Date: 20180131
  Receipt Date: 20180131
  Transmission Date: 20180509
  Serious: Yes (Other)
  Sender: FDA-Public Use
  Company Number: US-ACORDA-ACO_137437_2017

PATIENT
  Age: 59 Year
  Sex: Female

DRUGS (3)
  1. OTHER THERAPEUTIC PRODUCTS [Concomitant]
     Active Substance: UNSPECIFIED INGREDIENT
     Indication: PRODUCT USED FOR UNKNOWN INDICATION
     Dosage: UNK
     Route: 065
  2. TYSABRI [Suspect]
     Active Substance: NATALIZUMAB
     Indication: MULTIPLE SCLEROSIS
     Dosage: UNK, VIA INFUSION
     Route: 065
     Dates: start: 20161027
  3. AMPYRA [Suspect]
     Active Substance: DALFAMPRIDINE
     Indication: GAIT DISTURBANCE
     Dosage: 10 MG, BID
     Route: 048
     Dates: start: 201704

REACTIONS (9)
  - Heart rate increased [Recovered/Resolved]
  - Optic neuritis [Recovered/Resolved]
  - JC polyomavirus test positive [Unknown]
  - Multiple sclerosis relapse [Unknown]
  - Fatigue [Not Recovered/Not Resolved]
  - Pruritus generalised [Unknown]
  - Dyspnoea [Recovered/Resolved]
  - Antibody test positive [Unknown]
  - Headache [Unknown]

NARRATIVE: CASE EVENT DATE: 20170422
